FAERS Safety Report 5478760-0 (Version None)
Quarter: 2007Q4

REPORT INFORMATION
  Report Type: 
  Country: None (occurrence: None)
  Receive Date: 20071005
  Receipt Date: 20071004
  Transmission Date: 20080405
  Serious: Yes (Hospitalization)
  Sender: FDA-Public Use
  Company Number: IT-MERCK-0710ITA00002

PATIENT
  Age: 76 Year
  Sex: Female

DRUGS (1)
  1. MODURETIC 5-50 [Suspect]
     Route: 048
     Dates: start: 20060101, end: 20070901

REACTIONS (2)
  - HYPERTENSIVE CRISIS [None]
  - VERTIGO [None]
